FAERS Safety Report 6070840-4 (Version None)
Quarter: 2009Q1

REPORT INFORMATION
  Report Type: 
  Country: None (occurrence: None)
  Receive Date: 20090209
  Receipt Date: 20080908
  Transmission Date: 20090719
  Serious: No
  Sender: FDA-Public Use
  Company Number: A0746339A

PATIENT
  Age: 58 Year
  Sex: Female

DRUGS (5)
  1. PAROXETINE HCL [Suspect]
     Indication: DEPRESSION
     Dosage: 10MG PER DAY
     Route: 048
     Dates: start: 20050101, end: 20080807
  2. NEXIUM [Concomitant]
  3. SYNTHROID [Concomitant]
  4. LIPITOR [Concomitant]
  5. PAXIL [Concomitant]
     Indication: DEPRESSION
     Route: 048
     Dates: start: 19960101, end: 20050101

REACTIONS (4)
  - CRYING [None]
  - DIARRHOEA [None]
  - IRRITABILITY [None]
  - RESTLESSNESS [None]
